FAERS Safety Report 9219312 (Version 1)
Quarter: 2013Q2

REPORT INFORMATION
  Report Type: Spontaneous
  Country: US (occurrence: None)
  Receive Date: 20130408
  Receipt Date: 20130408
  Transmission Date: 20140414
  Serious: Yes (Death)
  Sender: FDA-Public Use
  Company Number: None

PATIENT
  Age: 1 Day
  Sex: Female
  Weight: .55 kg

DRUGS (1)
  1. INFASURF [Suspect]
     Indication: RESPIRATORY DISTRESS
     Route: 007
     Dates: start: 20130403, end: 20130413

REACTIONS (3)
  - Cardiac disorder [None]
  - Respiratory disorder [None]
  - Condition aggravated [None]
